FAERS Safety Report 7917428-5 (Version None)
Quarter: 2011Q4

REPORT INFORMATION
  Report Type: 
  Country: None (occurrence: None)
  Receive Date: 20111116
  Receipt Date: 20111109
  Transmission Date: 20120403
  Serious: Yes (Other)
  Sender: FDA-Public Use
  Company Number: JP-PFIZER INC-2011274813

PATIENT

DRUGS (3)
  1. PREDNISOLONE [Concomitant]
     Route: 048
  2. DIFLUCAN [Suspect]
     Dosage: 1 DF DAILY
     Route: 048
  3. SULFAMETHOXAZOLE AND TRIMETHOPRIM [Concomitant]
     Route: 048

REACTIONS (2)
  - BLOOD ALKALINE PHOSPHATASE INCREASED [None]
  - RENAL IMPAIRMENT [None]
